FAERS Safety Report 8811025 (Version 3)
Quarter: 2013Q3

REPORT INFORMATION
  Report Type: Report from Study
  Country: US (occurrence: US)
  Receive Date: 20120927
  Receipt Date: 20130815
  Transmission Date: 20140515
  Serious: Yes (Life-Threatening)
  Sender: FDA-Public Use
  Company Number: US-UCBSA-067140

PATIENT
  Age: 70 Year
  Sex: Male
  Weight: 79.4 kg

DRUGS (6)
  1. CERTOLIZUMAB PEGOL [Suspect]
     Indication: RHEUMATOID ARTHRITIS
     Route: 058
     Dates: start: 20120827, end: 20120911
  2. GLUCOSAMINE [Concomitant]
     Indication: SUPPLEMENTATION THERAPY
     Dosage: 2 TABLETS DAILY
     Route: 048
     Dates: start: 201111
  3. SAL PALMETTO [Concomitant]
     Indication: SUPPLEMENTATION THERAPY
     Dosage: 1 TABLET DAILY
     Route: 048
     Dates: start: 201111
  4. NAPROXEN [Concomitant]
     Indication: ARTHRALGIA
     Route: 048
     Dates: start: 201203
  5. FOLIC ACID [Concomitant]
     Indication: SUPPLEMENTATION THERAPY
     Route: 048
     Dates: start: 20120828
  6. METHOTREXATE [Concomitant]

REACTIONS (1)
  - Prostate cancer [Recovered/Resolved]
